FAERS Safety Report 6234303-5 (Version None)
Quarter: 2009Q2

REPORT INFORMATION
  Report Type: 
  Country: None (occurrence: None)
  Receive Date: 20090618
  Receipt Date: 20090608
  Transmission Date: 20091009
  Serious: Yes (Other)
  Sender: FDA-Public Use
  Company Number: US-AMGEN-QUU350423

PATIENT
  Sex: Female

DRUGS (4)
  1. NEULASTA [Suspect]
     Indication: CHEMOTHERAPY
     Route: 065
     Dates: start: 20090605
  2. TOPROL-XL [Concomitant]
  3. TAXOL [Concomitant]
  4. CYTOXAN [Concomitant]

REACTIONS (3)
  - BONE PAIN [None]
  - CHEST PAIN [None]
  - PALPITATIONS [None]
